FAERS Safety Report 8154641-9 (Version None)
Quarter: 2012Q1

REPORT INFORMATION
  Report Type: 
  Country: None (occurrence: None)
  Receive Date: 20120221
  Receipt Date: 20120214
  Transmission Date: 20120608
  Serious: Yes (Hospitalization)
  Sender: FDA-Public Use
  Company Number: GB-PFIZER INC-2012040370

PATIENT
  Age: 28 Year
  Sex: Female
  Weight: 95 kg

DRUGS (10)
  1. MEPERIDINE HCL [Suspect]
     Indication: GENERAL ANAESTHESIA
     Dosage: UNK
     Route: 042
     Dates: start: 20111010, end: 20111010
  2. DEXAMETHASONE [Suspect]
     Indication: GENERAL ANAESTHESIA
     Route: 042
  3. SUPRANE [Suspect]
     Indication: GENERAL ANAESTHESIA
     Dosage: 1 DF, SINGLE
     Route: 055
     Dates: start: 20111010
  4. SCOPOLAMINE [Suspect]
     Dosage: UNK
     Route: 042
     Dates: start: 20111010, end: 20111010
  5. SUPRANE [Suspect]
     Indication: CHOLEDOCHOLITHOTOMY
  6. ONDANSETRON [Suspect]
     Indication: GENERAL ANAESTHESIA
     Route: 042
  7. CYCLIZINE [Suspect]
     Indication: GENERAL ANAESTHESIA
     Route: 042
  8. FENTANYL [Suspect]
     Indication: GENERAL ANAESTHESIA
     Route: 042
  9. REMIFENTANIL [Suspect]
     Indication: GENERAL ANAESTHESIA
     Route: 042
  10. ATRACURIUM [Suspect]
     Indication: GENERAL ANAESTHESIA

REACTIONS (2)
  - LIVER FUNCTION TEST ABNORMAL [None]
  - PAIN [None]
